FAERS Safety Report 8971334 (Version 2)
Quarter: 2013Q1

REPORT INFORMATION
  Report Type: Spontaneous
  Country: US (occurrence: US)
  Receive Date: 20121218
  Receipt Date: 20130305
  Transmission Date: 20140127
  Serious: Yes (Death)
  Sender: FDA-Public Use
  Company Number: US-ELI_LILLY_AND_COMPANY-US201204008599

PATIENT
  Sex: Female

DRUGS (3)
  1. FORTEO [Suspect]
     Indication: OSTEOPOROSIS
     Dosage: UNK UNK, QD
     Route: 065
     Dates: start: 20110801
  2. FORTEO [Suspect]
     Dosage: UNK UNK, QD
  3. FORTEO [Suspect]
     Dosage: UNK UNK, QD

REACTIONS (7)
  - Failure to thrive [Fatal]
  - Cataract operation [Unknown]
  - Visual acuity reduced [Unknown]
  - Lacrimation increased [Unknown]
  - Injection site haemorrhage [Unknown]
  - Arthralgia [Unknown]
  - Underdose [Unknown]
